FAERS Safety Report 9281158 (Version 1)
Quarter: 2013Q2

REPORT INFORMATION
  Report Type: Spontaneous
  Country: US (occurrence: None)
  Receive Date: 20130508
  Receipt Date: 20130508
  Transmission Date: 20140414
  Serious: Yes (Hospitalization)
  Sender: FDA-Public Use
  Company Number: None

PATIENT
  Age: 52 Year
  Sex: Male
  Weight: 75.5 kg

DRUGS (7)
  1. WARFARIN [Suspect]
     Indication: PULMONARY EMBOLISM
     Route: 048
  2. AMIODARONE [Concomitant]
  3. FENTANYL [Concomitant]
  4. LORAZEPAM [Concomitant]
  5. OCTREOTIDE [Concomitant]
  6. PANTOPRAZOLE [Concomitant]
  7. PHYTONADIONE [Concomitant]

REACTIONS (11)
  - Refusal of treatment by patient [None]
  - Therapy cessation [None]
  - International normalised ratio decreased [None]
  - Faeces discoloured [None]
  - International normalised ratio increased [None]
  - Platelet count decreased [None]
  - Haemoglobin decreased [None]
  - Treatment noncompliance [None]
  - Chest pain [None]
  - Back pain [None]
  - Dyspnoea [None]
